FAERS Safety Report 5081026-4 (Version None)
Quarter: 2006Q3

REPORT INFORMATION
  Report Type: 
  Country: None (occurrence: None)
  Receive Date: 20060810
  Receipt Date: 20060801
  Transmission Date: 20061208
  Serious: Yes (Death, Other)
  Sender: FDA-Public Use
  Company Number: HQWYE734102AUG06

PATIENT
  Age: 56 Year
  Sex: Female

DRUGS (3)
  1. PREMARIN [Suspect]
  2. ESTRACE [Suspect]
  3. PROVERA [Suspect]

REACTIONS (3)
  - BREAST CANCER FEMALE [None]
  - OESTROGEN RECEPTOR ASSAY POSITIVE [None]
  - PROGESTERONE RECEPTOR ASSAY POSITIVE [None]
